FAERS Safety Report 22283530 (Version 1)
Quarter: 2023Q2

REPORT INFORMATION
  Report Type: Spontaneous
  Country: DE (occurrence: DE)
  Receive Date: 20230504
  Receipt Date: 20230504
  Transmission Date: 20230721
  Serious: Yes (Death, Other)
  Sender: FDA-Public Use
  Company Number: DE-BoehringerIngelheim-2023-BI-234924

PATIENT
  Age: 53 Year
  Sex: Male

DRUGS (2)
  1. AFATINIB [Suspect]
     Active Substance: AFATINIB
     Indication: EGFR gene mutation
     Dates: start: 201808
  2. AFATINIB [Suspect]
     Active Substance: AFATINIB
     Dates: start: 201901, end: 202011

REACTIONS (17)
  - Death [Fatal]
  - Pleural fibrosis [Unknown]
  - Metastases to bone [Unknown]
  - Metastases to bone [Unknown]
  - Metastases to bone [Unknown]
  - Tumour marker abnormal [Unknown]
  - Metastases to lung [Unknown]
  - Metastases to peritoneum [Recovering/Resolving]
  - Ascites [Recovered/Resolved]
  - Metastases to lung [Unknown]
  - Ileus [Unknown]
  - General physical health deterioration [Unknown]
  - Decreased appetite [Unknown]
  - Chest pain [Unknown]
  - Metastases to skin [Unknown]
  - Gene mutation [Unknown]
  - Metastases to lung [Unknown]

NARRATIVE: CASE EVENT DATE: 20190101
